FAERS Safety Report 8533871-8 (Version None)
Quarter: 2012Q3

REPORT INFORMATION
  Report Type: 
  Country: None (occurrence: None)
  Receive Date: 20120724
  Receipt Date: 20120717
  Transmission Date: 20120928
  Serious: Yes (Death, Hospitalization)
  Sender: FDA-Public Use
  Company Number: FR-ROCHE-1078040

PATIENT
  Sex: Male

DRUGS (2)
  1. AVASTIN [Suspect]
     Indication: NEOPLASM MALIGNANT
     Dosage: LAST DOSE ADMINISTERED : 640 MG
     Route: 042
     Dates: start: 20120515, end: 20120619
  2. PACLITAXEL [Suspect]
     Indication: PRODUCT USED FOR UNKNOWN INDICATION
     Dosage: LAST DOSE ADMINISTERED: 137 MG
     Route: 042
     Dates: start: 20120515, end: 20120619

REACTIONS (2)
  - ABDOMINAL PAIN [None]
  - FAECAL VOMITING [None]
